FAERS Safety Report 20799614 (Version 2)
Quarter: 2022Q4

REPORT INFORMATION
  Report Type: Spontaneous
  Country: CH (occurrence: CH)
  Receive Date: 20220509
  Receipt Date: 20221111
  Transmission Date: 20230112
  Serious: Yes (Other)
  Sender: FDA-Public Use
  Company Number: CH-BRISTOL-MYERS SQUIBB COMPANY-2022-035033

PATIENT
  Age: 35 Year
  Sex: Female

DRUGS (3)
  1. NIVOLUMAB [Suspect]
     Active Substance: NIVOLUMAB
     Indication: Malignant melanoma
     Dosage: 4 CYCLES
     Route: 065
     Dates: start: 201910, end: 202001
  2. NIVOLUMAB [Suspect]
     Active Substance: NIVOLUMAB
     Dosage: 8 CYCLE
     Route: 065
     Dates: start: 202002, end: 202005
  3. IPILIMUMAB [Suspect]
     Active Substance: IPILIMUMAB
     Indication: Malignant melanoma
     Dosage: 4 CYCLE
     Route: 065
     Dates: start: 201910, end: 202001

REACTIONS (2)
  - Malignant neoplasm progression [Unknown]
  - Toxic skin eruption [Unknown]
